FAERS Safety Report 5690601-5 (Version None)
Quarter: 2008Q1

REPORT INFORMATION
  Report Type: 
  Country: None (occurrence: None)
  Receive Date: 20080331
  Receipt Date: 20080331
  Transmission Date: 20080703
  Serious: Yes (Life-Threatening, Disabling)
  Sender: FDA-Public Use
  Company Number: None

PATIENT
  Sex: Male
  Weight: 72.5755 kg

DRUGS (1)
  1. CYMBALTA [Suspect]
     Indication: DEPRESSION
     Dosage: 1 CAPSULE ONCE PER DAY PO
     Route: 048
     Dates: start: 20080328, end: 20080329

REACTIONS (8)
  - ABDOMINAL PAIN UPPER [None]
  - ANOREXIA [None]
  - COLD SWEAT [None]
  - FEAR [None]
  - HYPERHIDROSIS [None]
  - ILL-DEFINED DISORDER [None]
  - LACRIMATION INCREASED [None]
  - NAUSEA [None]
